FAERS Safety Report 14991553 (Version 5)
Quarter: 2018Q3

REPORT INFORMATION
  Report Type: Spontaneous
  Country: IE (occurrence: IE)
  Receive Date: 20180608
  Receipt Date: 20180803
  Transmission Date: 20181010
  Serious: Yes (Other)
  Sender: FDA-Public Use
  Company Number: IE-ELI_LILLY_AND_COMPANY-IE201805014818

PATIENT
  Age: 55 Year
  Sex: Female

DRUGS (9)
  1. CISPLATIN. [Suspect]
     Active Substance: CISPLATIN
     Indication: PRODUCT USED FOR UNKNOWN INDICATION
     Dosage: UNK, UNKNOWN
     Route: 065
  2. CLOZARIL [Suspect]
     Active Substance: CLOZAPINE
     Indication: DEPRESSION
     Dosage: UNK UNK, UNKNOWN
     Route: 048
     Dates: start: 20161026, end: 201805
  3. CLOZARIL [Suspect]
     Active Substance: CLOZAPINE
     Indication: PERSONALITY DISORDER
  4. CLOZARIL [Suspect]
     Active Substance: CLOZAPINE
     Indication: SCHIZOPHRENIA
  5. CLOZARIL [Suspect]
     Active Substance: CLOZAPINE
     Indication: SUICIDAL BEHAVIOUR
  6. GEMCITABINE HYDROCHLORIDE. [Suspect]
     Active Substance: GEMCITABINE HYDROCHLORIDE
     Indication: PRODUCT USED FOR UNKNOWN INDICATION
     Dosage: UNK UNK, UNKNOWN
     Route: 065
  7. CLOZARIL [Suspect]
     Active Substance: CLOZAPINE
     Indication: AFFECTIVE DISORDER
     Dosage: 350 MG, DAILY
     Route: 048
     Dates: start: 20180603, end: 2018
  8. CLOZARIL [Suspect]
     Active Substance: CLOZAPINE
     Indication: AFFECT LABILITY
     Dosage: UNK UNK, UNKNOWN
     Route: 048
     Dates: start: 20140312, end: 20160910
  9. CLOZARIL [Suspect]
     Active Substance: CLOZAPINE
     Indication: IMPULSIVE BEHAVIOUR

REACTIONS (7)
  - Breast cancer [Unknown]
  - White blood cell count decreased [Recovered/Resolved]
  - Vulval cancer [Unknown]
  - Neutrophil count increased [Recovered/Resolved]
  - Neutropenia [Recovered/Resolved]
  - White blood cell count increased [Unknown]
  - Thrombocytopenia [Recovered/Resolved]

NARRATIVE: CASE EVENT DATE: 20160819
